FAERS Safety Report 9125373 (Version 2)
Quarter: 2013Q2

REPORT INFORMATION
  Report Type: Spontaneous
  Country: US (occurrence: US)
  Receive Date: 20130117
  Receipt Date: 20130423
  Transmission Date: 20140414
  Serious: Yes (Death, Other)
  Sender: FDA-Public Use
  Company Number: US-BRISTOL-MYERS SQUIBB COMPANY-17029810

PATIENT
  Age: 52 Year
  Sex: Male

DRUGS (3)
  1. YERVOY [Suspect]
     Indication: METASTATIC MALIGNANT MELANOMA
     Dosage: SECOND DOSE OF IPILIMUMAB 3MG/KG ON 02-OCT-2012.
     Route: 042
     Dates: start: 20120411
  2. ASPIRIN [Concomitant]
  3. TRAMADOL [Concomitant]

REACTIONS (2)
  - Malignant neoplasm progression [Fatal]
  - Hyperthyroidism [Recovered/Resolved]
